FAERS Safety Report 10633310 (Version 1)
Quarter: 2014Q4

REPORT INFORMATION
  Report Type: Spontaneous
  Country: US (occurrence: US)
  Receive Date: 20141205
  Receipt Date: 20141205
  Transmission Date: 20150529
  Serious: No
  Sender: FDA-Public Use
  Company Number: US-BRISTOL-MYERS SQUIBB COMPANY-21672753

PATIENT
  Age: 69 Year
  Sex: Male
  Weight: 99.32 kg

DRUGS (1)
  1. BYETTA [Suspect]
     Active Substance: EXENATIDE
     Indication: TYPE 2 DIABETES MELLITUS
     Dosage: DURATION 5-6 YEARS
     Route: 058

REACTIONS (3)
  - Increased appetite [Unknown]
  - Product quality issue [Unknown]
  - Weight increased [Unknown]
